FAERS Safety Report 13063479 (Version 3)
Quarter: 2017Q1

REPORT INFORMATION
  Report Type: Spontaneous
  Country: JP (occurrence: JP)
  Receive Date: 20161227
  Receipt Date: 20170120
  Transmission Date: 20170428
  Serious: Yes (Hospitalization, Other)
  Sender: FDA-Public Use
  Company Number: JP-009507513-1612JPN013493

PATIENT
  Age: 1 Month
  Sex: Female
  Weight: 2.96 kg

DRUGS (1)
  1. DIAZOXIDE CAPSULES 25 MG MSD [Suspect]
     Active Substance: DIAZOXIDE
     Indication: HYPERINSULINAEMIC HYPOGLYCAEMIA
     Dosage: 5 MG, BID
     Route: 048
     Dates: start: 20161208, end: 20161218

REACTIONS (1)
  - Renal failure [Recovered/Resolved]

NARRATIVE: CASE EVENT DATE: 20161217
